FAERS Safety Report 8911038 (Version 1)
Quarter: 2012Q4

REPORT INFORMATION
  Report Type: 
  Country: US (occurrence: US)
  Receive Date: 20121116
  Receipt Date: 20121116
  Transmission Date: 20130627
  Serious: No
  Sender: FDA-Public Use
  Company Number: US-009507513-1210USA013717

PATIENT
  Sex: Male

DRUGS (3)
  1. PROSCAR [Suspect]
     Indication: PROSTATOMEGALY
     Dosage: 5 mg, qd
     Route: 048
     Dates: start: 200410
  2. OMEPRAZOLE [Concomitant]
  3. TRAMADOL HYDROCHLORIDE [Concomitant]

REACTIONS (4)
  - Penile size reduced [Not Recovered/Not Resolved]
  - Pollakiuria [Not Recovered/Not Resolved]
  - Libido decreased [Recovered/Resolved]
  - Semen volume decreased [Recovered/Resolved]
